FAERS Safety Report 13302921 (Version 4)
Quarter: 2017Q2

REPORT INFORMATION
  Report Type: Spontaneous
  Country: JP (occurrence: JP)
  Receive Date: 20170307
  Receipt Date: 20170510
  Transmission Date: 20170830
  Serious: Yes (Hospitalization, Disabling)
  Sender: FDA-Public Use
  Company Number: JP-ELI_LILLY_AND_COMPANY-JP201702011563

PATIENT
  Age: 72 Year
  Sex: Female
  Weight: 62.2 kg

DRUGS (8)
  1. LEVOFOLINATE CALCIUM [Concomitant]
     Active Substance: LEVOLEUCOVORIN CALCIUM
     Indication: COLON CANCER
     Dosage: 275 MG, OTHER
     Route: 042
     Dates: start: 20160628, end: 20170131
  2. IRINOTECAN [Concomitant]
     Active Substance: IRINOTECAN
     Indication: COLON CANCER
     Dosage: 200 MG, OTHER
     Route: 042
     Dates: start: 20160628, end: 20170131
  3. 5 FU [Concomitant]
     Active Substance: FLUOROURACIL
     Indication: COLON CANCER
     Dosage: 525 MG, OTHER
     Route: 042
     Dates: start: 20160628, end: 20170131
  4. CYRAMZA [Suspect]
     Active Substance: RAMUCIRUMAB
     Indication: COLON CANCER
     Dosage: 420 MG, OTHER
     Route: 042
     Dates: start: 20161018, end: 20170131
  5. AMLODIPINE [Concomitant]
     Active Substance: AMLODIPINE BESYLATE
     Indication: HYPERTENSION
     Dosage: 2.5 MG, EACH MORNING
     Route: 048
     Dates: start: 20150421
  6. EMEND [Concomitant]
     Active Substance: APREPITANT
     Dosage: 80 MG, EACH MORNING
     Route: 048
     Dates: start: 20160628, end: 20170131
  7. 5 FU [Concomitant]
     Active Substance: FLUOROURACIL
     Dosage: 3250 MG, OTHER
     Route: 042
     Dates: start: 20160628, end: 20170131
  8. EMEND [Concomitant]
     Active Substance: APREPITANT
     Indication: PROPHYLAXIS
     Dosage: 125 MG, EACH MORNING
     Route: 048
     Dates: start: 20160628, end: 20170131

REACTIONS (5)
  - Ruptured cerebral aneurysm [Recovered/Resolved with Sequelae]
  - Hypertension [Recovering/Resolving]
  - Cardiac failure [Recovering/Resolving]
  - Pneumonia aspiration [Recovered/Resolved]
  - Vomiting [Unknown]

NARRATIVE: CASE EVENT DATE: 20170226
